FAERS Safety Report 5331031-5 (Version None)
Quarter: 2007Q2

REPORT INFORMATION
  Report Type: 
  Country: None (occurrence: None)
  Receive Date: 20070518
  Receipt Date: 20070518
  Transmission Date: 20071010
  Serious: Yes (Other)
  Sender: FDA-Public Use
  Company Number: None

PATIENT

DRUGS (5)
  1. REVLIMID [Suspect]
     Indication: MYELODYSPLASTIC SYNDROME
     Dosage: 10MG DAILY PO
     Route: 048
  2. RANITIDINE [Concomitant]
  3. METOPROLOL SUCCINATE [Concomitant]
  4. LEVOTHROID [Concomitant]
  5. LODINE [Concomitant]

REACTIONS (3)
  - HEADACHE [None]
  - PETECHIAE [None]
  - RASH [None]
